APPROVED DRUG PRODUCT: BREXPIPRAZOLE
Active Ingredient: BREXPIPRAZOLE
Strength: 2MG
Dosage Form/Route: TABLET;ORAL
Application: A213562 | Product #004
Applicant: AMNEAL EU LTD
Approved: Jan 31, 2023 | RLD: No | RS: No | Type: DISCN